FAERS Safety Report 23871213 (Version 1)
Quarter: 2024Q2

REPORT INFORMATION
  Report Type: Spontaneous
  Country: AU (occurrence: AU)
  Receive Date: 20240519
  Receipt Date: 20240519
  Transmission Date: 20240716
  Serious: Yes (Life-Threatening, Hospitalization, Other)
  Sender: FDA-Public Use
  Company Number: AU-SANDOZ-SDZ2024AU049578

PATIENT
  Age: 30 Year
  Sex: Female

DRUGS (2)
  1. CYCLOPHOSPHAMIDE [Suspect]
     Active Substance: CYCLOPHOSPHAMIDE
     Indication: Lymphodepletion
     Dosage: UNK
     Route: 065
     Dates: start: 20231017, end: 20231023
  2. FLUDARABINE PHOSPHATE [Suspect]
     Active Substance: FLUDARABINE PHOSPHATE
     Indication: Lymphodepletion
     Dosage: UNK
     Route: 065
     Dates: start: 20231017, end: 20231023

REACTIONS (7)
  - Sepsis [Not Recovered/Not Resolved]
  - Heart rate increased [Unknown]
  - Nausea [Unknown]
  - Hypotension [Unknown]
  - Pyrexia [Recovered/Resolved]
  - Hepatic function abnormal [Unknown]
  - Troponin decreased [Unknown]

NARRATIVE: CASE EVENT DATE: 20231112
